FAERS Safety Report 7489363-0 (Version None)
Quarter: 2011Q2

REPORT INFORMATION
  Report Type: 
  Country: None (occurrence: None)
  Receive Date: 20110518
  Receipt Date: 20110518
  Transmission Date: 20111010
  Serious: Yes (Death)
  Sender: FDA-Public Use
  Company Number: JP-B.I. PHARMACEUTICALS,INC./RIDGEFIELD-2011-BP-13030NB

PATIENT
  Age: 85 Year
  Sex: Female

DRUGS (12)
  1. ALDACTONE [Concomitant]
     Dosage: 25 MG
     Route: 048
     Dates: start: 20110509
  2. GLAKAY [Concomitant]
     Dosage: 45 MG
     Route: 048
     Dates: start: 20110509
  3. VERAPAMIL HCL [Concomitant]
     Dosage: 120 MG
     Route: 048
     Dates: start: 20110509
  4. ADALAT CC [Concomitant]
     Dosage: 40 MG
     Route: 048
     Dates: start: 20110509
  5. PRAZAXA [Suspect]
     Indication: ATRIAL FIBRILLATION
     Dosage: 220 MG
     Route: 048
     Dates: end: 20110513
  6. FRANDOL [Concomitant]
     Dosage: 60 MG
     Route: 048
     Dates: start: 20110509
  7. CALBLOCK [Concomitant]
     Dosage: 16 MG
     Route: 048
     Dates: start: 20110509
  8. OLMESARTAN MEDOXOMIL [Concomitant]
     Dosage: 20 MG
     Route: 048
     Dates: start: 20110509
  9. LASIX [Concomitant]
     Dosage: 20 MG
     Route: 048
     Dates: start: 20110509
  10. BENET [Concomitant]
     Dosage: 17.5 MG
     Route: 048
     Dates: start: 20110509
  11. DIGOXIN [Concomitant]
     Dosage: 0.125 MG
     Route: 048
     Dates: start: 20110509
  12. PIMOBENDAN [Concomitant]
     Dosage: 1.25 MG
     Route: 048
     Dates: start: 20110509

REACTIONS (6)
  - BRADYCARDIA [None]
  - BLOOD PRESSURE DECREASED [None]
  - HAEMORRHAGIC DIATHESIS [None]
  - RENAL FAILURE ACUTE [None]
  - HEPATIC FUNCTION ABNORMAL [None]
  - ACIDOSIS [None]
